FAERS Safety Report 5357214-6 (Version None)
Quarter: 2007Q2

REPORT INFORMATION
  Report Type: 
  Country: None (occurrence: None)
  Receive Date: 20070612
  Receipt Date: 20070612
  Transmission Date: 20071010
  Serious: No
  Sender: FDA-Public Use
  Company Number: None

PATIENT
  Age: 50 Year
  Sex: Female
  Weight: 69.8539 kg

DRUGS (1)
  1. CLOZAPINE [Suspect]
     Dosage: 350 MG DAILY PO
     Route: 048

REACTIONS (1)
  - CONVULSION [None]
